FAERS Safety Report 20225469 (Version 1)
Quarter: 2021Q4

REPORT INFORMATION
  Report Type: Spontaneous
  Country: JO (occurrence: JO)
  Receive Date: 20211224
  Receipt Date: 20211224
  Transmission Date: 20220303
  Serious: Yes (Death, Other)
  Sender: FDA-Public Use
  Company Number: JO-BIOVITRUM-2021JO12512

PATIENT
  Age: 12 Year
  Sex: Female

DRUGS (1)
  1. NITISINONE [Suspect]
     Active Substance: NITISINONE
     Indication: Tyrosinaemia
     Route: 065

REACTIONS (1)
  - Hepatocellular carcinoma [Fatal]
